FAERS Safety Report 7090900-9 (Version None)
Quarter: 2010Q4

REPORT INFORMATION
  Report Type: 
  Country: None (occurrence: None)
  Receive Date: 20101109
  Receipt Date: 20101027
  Transmission Date: 20110411
  Serious: Yes (Hospitalization, Other)
  Sender: FDA-Public Use
  Company Number: US-ELI_LILLY_AND_COMPANY-US201009005402

PATIENT
  Sex: Female

DRUGS (1)
  1. FORTEO [Suspect]
     Dosage: 20 UG, UNK
     Route: 058
     Dates: start: 20100829

REACTIONS (5)
  - AORTIC ANEURYSM [None]
  - DIABETES MELLITUS [None]
  - HYPERTENSION [None]
  - RENAL COLIC [None]
  - RENAL FAILURE CHRONIC [None]
